FAERS Safety Report 8395738-8 (Version None)
Quarter: 2012Q1

REPORT INFORMATION
  Report Type: 
  Country: None (occurrence: None)
  Receive Date: 20120323
  Receipt Date: 20110414
  Transmission Date: 20120608
  Serious: Yes (Other)
  Sender: FDA-Public Use
  Company Number: 163-21880-11033575

PATIENT
  Age: 62 Year
  Sex: Male

DRUGS (4)
  1. REVLIMID [Suspect]
  2. REVLIMID [Suspect]
     Indication: MULTIPLE MYELOMA
     Dosage: 10 MG, 1 IN 1 D, PO ; 5MG ALTERNATING WITH 10MG, QOD, PO
     Route: 048
     Dates: start: 20101201, end: 20110216
  3. REVLIMID [Suspect]
     Indication: MULTIPLE MYELOMA
     Dosage: 10 MG, 1 IN 1 D, PO ; 5MG ALTERNATING WITH 10MG, QOD, PO
     Route: 048
     Dates: start: 20110101, end: 20110101
  4. ASPIRIN [Concomitant]

REACTIONS (1)
  - HAEMATOCRIT DECREASED [None]
